FAERS Safety Report 5880295-8 (Version None)
Quarter: 2008Q3

REPORT INFORMATION
  Report Type: 
  Country: None (occurrence: None)
  Receive Date: 20080912
  Receipt Date: 20080902
  Transmission Date: 20090109
  Serious: Yes (Other)
  Sender: FDA-Public Use
  Company Number: US-PFIZER INC-2008074394

PATIENT
  Sex: Male
  Weight: 113.63 kg

DRUGS (2)
  1. VIAGRA [Suspect]
     Indication: ERECTILE DYSFUNCTION
  2. PLAVIX [Concomitant]

REACTIONS (2)
  - BLISTER [None]
  - BLOOD CHOLESTEROL ABNORMAL [None]
